FAERS Safety Report 20669469 (Version 1)
Quarter: 2022Q2

REPORT INFORMATION
  Report Type: Spontaneous
  Country: US (occurrence: None)
  Receive Date: 20220403
  Receipt Date: 20220403
  Transmission Date: 20220721
  Serious: No
  Sender: FDA-Public Use
  Company Number: None

PATIENT
  Age: 64 Year
  Sex: Female
  Weight: 62.55 kg

DRUGS (4)
  1. LISINOPRIL [Suspect]
     Active Substance: LISINOPRIL
     Indication: Blood pressure increased
     Dosage: FREQUENCY : AT BEDTIME;?
     Route: 048
     Dates: start: 20220318, end: 20220331
  2. ALPRAZOLAM [Concomitant]
     Active Substance: ALPRAZOLAM
  3. ARGININE [Concomitant]
     Active Substance: ARGININE
  4. MULTI-VITAMIN [Concomitant]
     Active Substance: .ALPHA.-TOCOPHEROL ACETATE, DL-\ASCORBIC ACID\CYANOCOBALAMIN\FLUORIDE ION\FOLIC ACID\NIACIN\PYRIDOXI

REACTIONS (3)
  - Palpitations [None]
  - Cough [None]
  - Oropharyngeal pain [None]

NARRATIVE: CASE EVENT DATE: 20220330
